FAERS Safety Report 24092117 (Version 1)
Quarter: 2024Q3

REPORT INFORMATION
  Report Type: Spontaneous
  Country: CN (occurrence: CN)
  Receive Date: 20240715
  Receipt Date: 20240715
  Transmission Date: 20241017
  Serious: Yes (Hospitalization, Other)
  Sender: SLATE RUN
  Company Number: CN-SLATERUN-2024SRLIT00116

PATIENT
  Age: 19 Year
  Sex: Male

DRUGS (7)
  1. VANCOMYCIN [Suspect]
     Active Substance: VANCOMYCIN
     Indication: Urinary tract infection
     Dosage: EVERY 12 HOURS
     Route: 065
  2. TRETINOIN [Concomitant]
     Active Substance: TRETINOIN
     Route: 065
  3. HYDROXYUREA [Concomitant]
     Active Substance: HYDROXYUREA
     Indication: Product used for unknown indication
     Route: 065
  4. ACYCLOVIR [Concomitant]
     Active Substance: ACYCLOVIR
     Indication: Urinary tract infection
     Route: 065
  5. Moxifoxacin [Concomitant]
     Indication: Urinary tract infection
     Route: 065
  6. IMIPENEM AND CILASTATIN [Concomitant]
     Active Substance: CILASTATIN SODIUM\IMIPENEM
     Indication: Urinary tract infection
     Route: 065
  7. sodium Arsenic trioxide [Concomitant]
     Route: 065

REACTIONS (1)
  - Hepatotoxicity [Recovering/Resolving]
